FAERS Safety Report 7998558-9 (Version None)
Quarter: 2011Q4

REPORT INFORMATION
  Report Type: 
  Country: None (occurrence: None)
  Receive Date: 20111221
  Receipt Date: 20111212
  Transmission Date: 20120403
  Serious: Yes (Hospitalization)
  Sender: FDA-Public Use
  Company Number: GB-ACTELION-A-CH2011-58316

PATIENT
  Sex: Male

DRUGS (6)
  1. TREPROSTINIL [Concomitant]
  2. TRACLEER [Suspect]
     Indication: PULMONARY ARTERIAL HYPERTENSION
     Dosage: UNK
     Route: 048
  3. OXYGEN [Concomitant]
  4. WARFARIN SODIUM [Concomitant]
  5. SILDENAFIL [Concomitant]
  6. DIURETICS [Concomitant]

REACTIONS (5)
  - OEDEMA PERIPHERAL [None]
  - GOUT [None]
  - WEIGHT DECREASED [None]
  - OEDEMA [None]
  - INTRA-ABDOMINAL HAEMORRHAGE [None]
